FAERS Safety Report 6391439-6 (Version None)
Quarter: 2009Q4

REPORT INFORMATION
  Report Type: 
  Country: None (occurrence: None)
  Receive Date: 20091007
  Receipt Date: 20090929
  Transmission Date: 20100525
  Serious: Yes (Hospitalization, Other)
  Sender: FDA-Public Use
  Company Number: FR-BRISTOL-MYERS SQUIBB COMPANY-14796197

PATIENT
  Age: 52 Year
  Sex: Female

DRUGS (4)
  1. COAPROVEL TABS [Suspect]
     Indication: HYPERTENSION
     Route: 048
     Dates: start: 20090923
  2. COAPROVEL TABS [Suspect]
     Indication: SUICIDE ATTEMPT
     Route: 048
     Dates: start: 20090923
  3. IMOVANE [Suspect]
     Indication: SUICIDE ATTEMPT
     Dosage: TAB    1 DOSAGE FORM = 28 (UNIT NOT SPECIFIED)
     Route: 048
     Dates: start: 20090923
  4. PRAZEPAM [Suspect]
     Indication: SUICIDE ATTEMPT
     Dosage: TABS 1 DOSAGE FORM = 20 (UNIT NOT SPECIFIED)
     Route: 048
     Dates: start: 20090923

REACTIONS (5)
  - CIRCULATORY COLLAPSE [None]
  - HYPOKALAEMIA [None]
  - MULTIPLE DRUG OVERDOSE INTENTIONAL [None]
  - RENAL FAILURE ACUTE [None]
  - SUICIDE ATTEMPT [None]
